FAERS Safety Report 11252957 (Version 3)
Quarter: 2015Q3

REPORT INFORMATION
  Report Type: Spontaneous
  Country: US (occurrence: US)
  Receive Date: 20150708
  Receipt Date: 20150729
  Transmission Date: 20151125
  Serious: Yes (Hospitalization, Other)
  Sender: FDA-Public Use
  Company Number: US-009507513-1507USA001228

PATIENT
  Age: 57 Year
  Sex: Female

DRUGS (6)
  1. ASMANEX [Suspect]
     Active Substance: MOMETASONE FUROATE
     Indication: ASTHMA
     Dosage: ONE INHALATION EVERY NIGHT
     Route: 048
     Dates: start: 201007
  2. VICTOZA [Concomitant]
     Active Substance: LIRAGLUTIDE
  3. QUINAPRIL HYDROCHLORIDE. [Concomitant]
     Active Substance: QUINAPRIL HYDROCHLORIDE
  4. GLIPIZIDE. [Concomitant]
     Active Substance: GLIPIZIDE
  5. ZETIA [Concomitant]
     Active Substance: EZETIMIBE
     Dosage: UNK
     Route: 048
  6. NASONEX [Concomitant]
     Active Substance: MOMETASONE FUROATE

REACTIONS (6)
  - Hip arthroplasty [Unknown]
  - Product quality issue [Unknown]
  - Pancreatitis [Unknown]
  - Wheezing [Not Recovered/Not Resolved]
  - Cholecystectomy [Unknown]
  - Incorrect route of drug administration [Unknown]

NARRATIVE: CASE EVENT DATE: 201007
